FAERS Safety Report 17935095 (Version 3)
Quarter: 2020Q3

REPORT INFORMATION
  Report Type: Spontaneous
  Country: US (occurrence: US)
  Receive Date: 20200624
  Receipt Date: 20200706
  Transmission Date: 20201103
  Serious: No
  Sender: FDA-Public Use
  Company Number: US-PFIZER INC-2016538246

PATIENT
  Age: 64 Year
  Sex: Female

DRUGS (45)
  1. CELEBREX [Suspect]
     Active Substance: CELECOXIB
     Indication: MUSCLE SPASMS
  2. QNASL [Concomitant]
     Active Substance: BECLOMETHASONE DIPROPIONATE
     Indication: HYPERSENSITIVITY
     Dosage: UNK, AS NEEDED (44 MCG PER PUFF, 2 PUFFS IN EACH NOSTRIL ONCE A DAY)
     Route: 045
  3. FLECTOR [Concomitant]
     Active Substance: DICLOFENAC EPOLAMINE
     Indication: SCIATICA
  4. TRAMADOL. [Concomitant]
     Active Substance: TRAMADOL
     Indication: BACK PAIN
  5. FLAXSEED [Concomitant]
     Active Substance: FLAX SEED
     Indication: SKIN DISORDER
  6. CELEBREX [Suspect]
     Active Substance: CELECOXIB
     Indication: OSTEOARTHRITIS
     Dosage: 100 MG, UNK
  7. COZAAR [Concomitant]
     Active Substance: LOSARTAN POTASSIUM
     Indication: HYPERTENSION
     Dosage: 100 MG, 1X/DAY
  8. HCTZ [Concomitant]
     Active Substance: HYDROCHLOROTHIAZIDE
     Indication: HYPERTENSION
     Dosage: 25 MG, 1X/DAY
  9. ZYRTEC [Concomitant]
     Active Substance: CETIRIZINE HYDROCHLORIDE
     Indication: HYPERSENSITIVITY
     Dosage: 10 MG, 1X/DAY (AT BEDTIME)
  10. LIDODERM [Concomitant]
     Active Substance: LIDOCAINE
     Indication: SCIATICA
  11. VITAMIN D3 [Concomitant]
     Active Substance: CHOLECALCIFEROL
     Indication: OSTEOPOROSIS
     Dosage: 1 DF, DAILY
  12. FISH OIL OMEGA 3 [Concomitant]
     Active Substance: FISH OIL
     Indication: CARDIOVASCULAR INSUFFICIENCY
     Dosage: 90 MG, 1X/DAY (WITH A MEAL)
  13. LYRICA [Concomitant]
     Active Substance: PREGABALIN
     Indication: FIBROMYALGIA
     Dosage: 100 MG, 3X/DAY (1 CAPSULE IN MORNING, 2 AT BEDTIME, DAILY)
     Route: 048
  14. LIDODERM [Concomitant]
     Active Substance: LIDOCAINE
     Indication: JOINT INJURY
     Dosage: UNK, AS NEEDED (APPLY 1 OR 2 PATCH(S) TO AFFECTED AREA AT NIGHT)
  15. LIDODERM [Concomitant]
     Active Substance: LIDOCAINE
     Indication: BACK PAIN
  16. FLECTOR [Concomitant]
     Active Substance: DICLOFENAC EPOLAMINE
     Indication: OSTEOARTHRITIS
  17. XANAX [Concomitant]
     Active Substance: ALPRAZOLAM
     Indication: ANXIETY DISORDER
     Dosage: 0.5 MG, 3X/DAY
  18. VITAMIN B12 [Concomitant]
     Active Substance: CYANOCOBALAMIN
     Indication: NERVOUS SYSTEM DISORDER
     Dosage: 1000 UG, 1X/DAY (WITH A MEAL)
  19. VICODIN [Concomitant]
     Active Substance: ACETAMINOPHEN\HYDROCODONE BITARTRATE
     Indication: BACK PAIN
  20. FLEXERIL [Concomitant]
     Active Substance: CYCLOBENZAPRINE HYDROCHLORIDE
     Indication: MUSCLE SPASMS
     Dosage: 10 MG, AS NEEDED (AT BEDTIME, NIGHTLY)
  21. LIDODERM [Concomitant]
     Active Substance: LIDOCAINE
     Indication: OSTEOARTHRITIS
  22. FLECTOR [Concomitant]
     Active Substance: DICLOFENAC EPOLAMINE
     Indication: JOINT INJURY
     Dosage: UNK, AS NEEDED (APPLY 1 PATCH TO AFFECTED AREA DURING DAYTIME)
  23. CELEBREX [Suspect]
     Active Substance: CELECOXIB
     Indication: SCIATICA
     Dosage: 200 MG, 2X/DAY
     Route: 048
  24. VICODIN [Concomitant]
     Active Substance: ACETAMINOPHEN\HYDROCODONE BITARTRATE
     Indication: JOINT INJURY
     Dosage: UNK, AS NEEDED ([HYDROCODONE BITARTRATE 7.5 MG]/[ PARACETAMOL 325 MG], 1 OR 2 TABLETS A DAY)
  25. CYMBALTA [Concomitant]
     Active Substance: DULOXETINE HYDROCHLORIDE
     Indication: MAJOR DEPRESSION
     Dosage: 60 MG, 2X/DAY (2 CAPSULES IN MORNING, AND 2 AT BEDTIME)
  26. RITALIN [Concomitant]
     Active Substance: METHYLPHENIDATE HYDROCHLORIDE
     Indication: ATTENTION DEFICIT HYPERACTIVITY DISORDER
     Dosage: 10 MG, 3X/DAY
  27. CENTRUM FOR WOMEN [Concomitant]
     Active Substance: VITAMINS
     Indication: MALNUTRITION
     Dosage: 1 DF, 1X/DAY (WITH MEAL)
  28. QVAR [Concomitant]
     Active Substance: BECLOMETHASONE DIPROPIONATE
     Indication: ASTHMA
     Dosage: UNK, AS NEEDED (80 MCG 1 PUFF TWICE DAILY)
  29. PROAIR RESPICLICK [Concomitant]
     Active Substance: ALBUTEROL SULFATE
     Indication: ASTHMA
     Dosage: UNK, AS NEEDED (117 MCG PER PUFF, 1 PUFF 2 TIMES A DAY)
  30. PROTONIX [Concomitant]
     Active Substance: PANTOPRAZOLE SODIUM
     Indication: GASTROINTESTINAL DISORDER
     Dosage: 40 MG, 1X/DAY (AFTER SUPPER)
  31. VICODIN [Concomitant]
     Active Substance: ACETAMINOPHEN\HYDROCODONE BITARTRATE
     Indication: OSTEOARTHRITIS
  32. VICODIN [Concomitant]
     Active Substance: ACETAMINOPHEN\HYDROCODONE BITARTRATE
     Indication: SCIATICA
  33. FLECTOR [Concomitant]
     Active Substance: DICLOFENAC EPOLAMINE
     Indication: BACK PAIN
  34. TRAMADOL. [Concomitant]
     Active Substance: TRAMADOL
     Indication: OSTEOARTHRITIS
  35. TRAZODONE [Concomitant]
     Active Substance: TRAZODONE HYDROCHLORIDE
     Indication: INSOMNIA
     Dosage: 100 MG, 1X/DAY (2 AT BEDTIME)
  36. CYMBALTA [Concomitant]
     Active Substance: DULOXETINE HYDROCHLORIDE
     Indication: PAIN
  37. IPRATROPIUM BROMIDE. [Concomitant]
     Active Substance: IPRATROPIUM BROMIDE
     Dosage: UNK, AS NEEDED (2 PUFFS IN EACH NOSTRIL ONCE A DAY)
     Route: 045
  38. NIACIN. [Concomitant]
     Active Substance: NIACIN
     Indication: CARDIOVASCULAR INSUFFICIENCY
     Dosage: 2 DF, 1X/DAY (2 CAPSULES AT BEDTIME)
  39. CINNAMON. [Concomitant]
     Active Substance: CINNAMON
     Indication: BLOOD CHOLESTEROL
     Dosage: 500 MG, 2X/DAY (WITH MEALS)
  40. FLAXSEED [Concomitant]
     Active Substance: FLAX SEED
     Indication: BLOOD CHOLESTEROL
     Dosage: 1300 MG, 1X/DAY (WITH MEALS)
  41. FLAXSEED [Concomitant]
     Active Substance: FLAX SEED
     Indication: CARDIAC DISORDER
  42. VERAPAMIL [Concomitant]
     Active Substance: VERAPAMIL HYDROCHLORIDE
     Indication: HYPERTENSION
     Dosage: 120 MG, 2X/DAY
  43. PRAVACHOL [Concomitant]
     Active Substance: PRAVASTATIN SODIUM
     Indication: BLOOD CHOLESTEROL
     Dosage: 10 MG, 1X/DAY (AT BEDTIME)
  44. TRAMADOL. [Concomitant]
     Active Substance: TRAMADOL
     Indication: JOINT INJURY
     Dosage: 50 MG, AS NEEDED (1 TABLET 3 TIMES A DAY)
  45. TRAMADOL. [Concomitant]
     Active Substance: TRAMADOL
     Indication: SCIATICA

REACTIONS (6)
  - Product dispensing error [Unknown]
  - Spinal pain [Unknown]
  - Memory impairment [Unknown]
  - Reading disorder [Unknown]
  - Arthralgia [Unknown]
  - Headache [Unknown]
